FAERS Safety Report 6253481-5 (Version None)
Quarter: 2009Q3

REPORT INFORMATION
  Report Type: 
  Country: None (occurrence: None)
  Receive Date: 20090701
  Receipt Date: 20090624
  Transmission Date: 20100115
  Serious: Yes (Death)
  Sender: FDA-Public Use
  Company Number: BR-ABBOTT-09P-020-0576457-01

PATIENT
  Sex: Male

DRUGS (6)
  1. RITONAVIR [Suspect]
     Indication: HIV INFECTION
     Route: 048
     Dates: start: 20060803, end: 20090514
  2. TMC114 [Concomitant]
     Indication: HIV INFECTION
     Dates: start: 20060824
  3. TMC125 (OPEN LABEL) [Concomitant]
     Indication: HIV INFECTION
     Dates: start: 20080626
  4. TMC 125/PLACEBO [Concomitant]
     Indication: HIV INFECTION
     Dates: start: 20060824
  5. ETRAVIRINE [Concomitant]
     Indication: HIV INFECTION
     Dates: start: 20080624
  6. DARUNAVIR [Concomitant]
     Indication: HIV INFECTION
     Dates: start: 20060824

REACTIONS (3)
  - HAEMORRHAGIC DIATHESIS [None]
  - HEPATITIS C [None]
  - THROMBOCYTOPENIA [None]
